FAERS Safety Report 4416946-4 (Version None)
Quarter: 2004Q3

REPORT INFORMATION
  Report Type: 
  Country: None (occurrence: None)
  Receive Date: 20040806
  Receipt Date: 20021114
  Transmission Date: 20050211
  Serious: Yes (Hospitalization, Other)
  Sender: FDA-Public Use
  Company Number: PHFR2002GB03798

PATIENT
  Age: 25 Year
  Sex: Male

DRUGS (1)
  1. CLOZARIL [Suspect]
     Dosage: 475 MG/DAY
     Route: 048
     Dates: start: 20010628, end: 20021113

REACTIONS (7)
  - ANXIETY [None]
  - BUNDLE BRANCH BLOCK RIGHT [None]
  - DILATATION ATRIAL [None]
  - MYOCARDITIS [None]
  - PALPITATIONS [None]
  - SUPRAVENTRICULAR EXTRASYSTOLES [None]
  - SUPRAVENTRICULAR TACHYCARDIA [None]
